FAERS Safety Report 18970455 (Version 3)
Quarter: 2024Q2

REPORT INFORMATION
  Report Type: Spontaneous
  Country: CA (occurrence: CA)
  Receive Date: 20210305
  Receipt Date: 20240408
  Transmission Date: 20240716
  Serious: Yes (Death, Life-Threatening)
  Sender: FDA-Public Use
  Company Number: CA-BEH-2021128908

PATIENT
  Sex: Male

DRUGS (5)
  1. ALBUREX [Suspect]
     Active Substance: ALBUMIN HUMAN
     Indication: Hypoalbuminaemia
     Dosage: 500 MILLILITER, ALL FRACTION
     Route: 065
     Dates: start: 20210203, end: 20210204
  2. ALBUREX [Suspect]
     Active Substance: ALBUMIN HUMAN
     Indication: Oedema
     Dosage: 200 CC^S
     Route: 065
     Dates: start: 20210203, end: 20210203
  3. ALBUREX [Suspect]
     Active Substance: ALBUMIN HUMAN
     Dosage: 300 CC^S
     Route: 065
     Dates: start: 20210204, end: 20210204
  4. SODIUM CHLORIDE [Concomitant]
     Active Substance: SODIUM CHLORIDE
     Indication: Hypovolaemia
     Dosage: 4 LITER
     Dates: start: 20210203, end: 20210203
  5. SODIUM CHLORIDE [Concomitant]
     Active Substance: SODIUM CHLORIDE
     Indication: Premedication
     Dosage: UNK
     Dates: start: 20210201, end: 20210204

REACTIONS (6)
  - Clostridium difficile infection [Fatal]
  - Hypovolaemic shock [Fatal]
  - Transfusion-related circulatory overload [Fatal]
  - Dyspnoea [Fatal]
  - Tachypnoea [Fatal]
  - Hypoxia [Fatal]

NARRATIVE: CASE EVENT DATE: 20210204
